FAERS Safety Report 5572943-7 (Version None)
Quarter: 2007Q4

REPORT INFORMATION
  Report Type: 
  Country: None (occurrence: None)
  Receive Date: 20071219
  Receipt Date: 20071219
  Transmission Date: 20080405
  Serious: No
  Sender: FDA-Public Use
  Company Number: None

PATIENT
  Age: 24 Year
  Sex: Male
  Weight: 81.6475 kg

DRUGS (2)
  1. HALOPERIDOL [Suspect]
     Dosage: PO AND IM
     Route: 048
  2. ARIPIPRAZOLE [Concomitant]

REACTIONS (1)
  - TREMOR [None]
